FAERS Safety Report 24383010 (Version 1)
Quarter: 2024Q3

REPORT INFORMATION
  Report Type: Spontaneous
  Country: US (occurrence: None)
  Receive Date: 20240930
  Receipt Date: 20240930
  Transmission Date: 20241016
  Serious: No
  Sender: Public
  Company Number: None

PATIENT
  Sex: Male

DRUGS (1)
  1. INJECTAFER [Suspect]
     Active Substance: FERRIC CARBOXYMALTOSE
     Indication: Iron deficiency anaemia
     Dosage: OTHER FREQUENCY : EVERY7DAYSX1MONTH;?
     Route: 042
     Dates: start: 20240927

REACTIONS (6)
  - Infusion related reaction [None]
  - Abdominal pain [None]
  - Dyspnoea [None]
  - Nausea [None]
  - Pruritus [None]
  - Intentional dose omission [None]

NARRATIVE: CASE EVENT DATE: 20240927
